FAERS Safety Report 8080702-9 (Version None)
Quarter: 2012Q1

REPORT INFORMATION
  Report Type: 
  Country: None (occurrence: None)
  Receive Date: 20120130
  Receipt Date: 20120124
  Transmission Date: 20120608
  Serious: Yes (Death, Other)
  Sender: FDA-Public Use
  Company Number: PHEH2010US00462

PATIENT
  Sex: Male
  Weight: 108.84 kg

DRUGS (24)
  1. LEVOTHYROXINE SODIUM [Concomitant]
     Dosage: 0.1 MG, QD
     Route: 048
  2. CLONIDINE [Concomitant]
     Dosage: 0.2 MG, QD
  3. FERROUS SULFATE TAB [Concomitant]
  4. ACETAMINOPHEN [Concomitant]
     Indication: PYREXIA
  5. CLINDAMYCIN [Concomitant]
     Dosage: 150 MG, QD
  6. DOXYCYCLINE [Concomitant]
  7. SYNTHROID [Concomitant]
  8. MS CONTIN [Concomitant]
     Dosage: 30 MG, TID
  9. MAGNESIUM CITRATE [Concomitant]
  10. PROPOFOL [Concomitant]
  11. ZOMETA [Suspect]
     Dosage: 3 MG, MONTHLY
     Dates: start: 20050701
  12. HYDROCHLOROTHIAZIDE [Concomitant]
     Dosage: 25 MG, QD
  13. MORPHINE SULFATE [Concomitant]
     Dosage: 30 MG, 2 EVERY 8 HOURS
  14. ACETAMINOPHEN [Concomitant]
     Indication: HEADACHE
  15. ZOMETA [Suspect]
     Indication: METASTASES TO BONE
     Dosage: 4 MG, QMO
     Route: 042
     Dates: start: 20031006, end: 20031201
  16. AVAPRO [Concomitant]
     Dosage: 150 MG, BID
     Route: 048
  17. FENTANYL [Concomitant]
  18. DILAUDID [Concomitant]
     Dosage: 4 MG, UNK
  19. BENADRYL [Concomitant]
     Indication: INSOMNIA
     Dosage: 25 MG, QH
     Route: 048
  20. SUNITINIB MALATE [Concomitant]
     Dosage: 25 MG, QD
  21. METROGEL [Concomitant]
  22. AREDIA [Suspect]
     Dates: start: 20040102, end: 20050601
  23. DROPERIDOL [Concomitant]
  24. LOSARTAN POTASSIUM [Concomitant]
     Dosage: 100 MG, QD

REACTIONS (51)
  - GENERAL PHYSICAL HEALTH DETERIORATION [None]
  - ANXIETY [None]
  - CONSTIPATION [None]
  - EXPOSED BONE IN JAW [None]
  - PLEURAL EFFUSION [None]
  - BREAST TENDERNESS [None]
  - PAIN IN JAW [None]
  - STOMATITIS [None]
  - ATELECTASIS [None]
  - HEPATIC LESION [None]
  - PAPILLOMA VIRAL INFECTION [None]
  - SINUS BRADYCARDIA [None]
  - TOOTH ABSCESS [None]
  - GAIT DISTURBANCE [None]
  - INSOMNIA [None]
  - DECREASED INTEREST [None]
  - LYMPHADENOPATHY [None]
  - CHOLELITHIASIS [None]
  - DECUBITUS ULCER [None]
  - WOUND [None]
  - LUNG NEOPLASM [None]
  - HYPOKALAEMIA [None]
  - CONJUNCTIVITIS [None]
  - OEDEMA PERIPHERAL [None]
  - RENAL CYST [None]
  - OSTEOPENIA [None]
  - FEMUR FRACTURE [None]
  - DEATH [None]
  - PHYSICAL DISABILITY [None]
  - OSTEOMYELITIS [None]
  - ASTHENIA [None]
  - ANGIOPATHY [None]
  - PAIN IN EXTREMITY [None]
  - PAIN [None]
  - URETHRAL OBSTRUCTION [None]
  - NEPHROLITHIASIS [None]
  - DYSPNOEA [None]
  - DENTAL CARIES [None]
  - CYST [None]
  - SOFT TISSUE MASS [None]
  - SKIN LESION [None]
  - LYMPHOEDEMA [None]
  - OSTEONECROSIS OF JAW [None]
  - URINARY RETENTION [None]
  - URETHRAL STENOSIS [None]
  - OSTEOPOROSIS [None]
  - HAEMOPTYSIS [None]
  - GYNAECOMASTIA [None]
  - CARDIOMEGALY [None]
  - DEPRESSION [None]
  - ARTHRALGIA [None]
